FAERS Safety Report 6302968-5 (Version None)
Quarter: 2009Q3

REPORT INFORMATION
  Report Type: 
  Country: None (occurrence: None)
  Receive Date: 20090810
  Receipt Date: 20090806
  Transmission Date: 20100115
  Serious: Yes (Other)
  Sender: FDA-Public Use
  Company Number: D0062103A

PATIENT
  Sex: Male

DRUGS (2)
  1. SULTANOL [Suspect]
     Route: 055
  2. AMBROXOL [Concomitant]
     Route: 065

REACTIONS (1)
  - RESPIRATORY ARREST [None]
